FAERS Safety Report 8240839-8 (Version None)
Quarter: 2012Q1

REPORT INFORMATION
  Report Type: 
  Country: None (occurrence: None)
  Receive Date: 20120328
  Receipt Date: 20120323
  Transmission Date: 20120608
  Serious: Yes (Life-Threatening)
  Sender: FDA-Public Use
  Company Number: PHHY2012FR025264

PATIENT
  Sex: Female

DRUGS (9)
  1. NEORAL [Suspect]
     Dosage: UNK UKN, UNK
     Dates: start: 20111029, end: 20120115
  2. VFEND [Suspect]
     Dosage: 400 MG, DAILY
     Dates: start: 20111230, end: 20120115
  3. TARGOCID [Suspect]
     Dosage: 400 MG, DAILY
     Dates: start: 20111227, end: 20120115
  4. CORTICOSTEROID NOS [Concomitant]
  5. FLUDARABINE PHOSPHATE [Suspect]
     Indication: STEM CELL TRANSPLANT
     Dosage: UNK UKN, UNK
     Dates: start: 20120105, end: 20120108
  6. ANTI-THYMOCYTE GLOBULIN RABBIT NOS [Suspect]
     Dosage: UNK UKN, UNK
     Dates: start: 20120109, end: 20120110
  7. CEFEPIME [Suspect]
     Indication: STEM CELL TRANSPLANT
     Dosage: 6 G, DAILY
     Route: 042
     Dates: start: 20111230, end: 20120115
  8. ANTILYMPHOCYTE SERUM [Concomitant]
  9. CYCLOPHOSPHAMIDE [Suspect]
     Indication: STEM CELL TRANSPLANT
     Dosage: 1905 MG, UNK
     Route: 042
     Dates: start: 20120105, end: 20120106

REACTIONS (13)
  - SUBDURAL HAEMORRHAGE [None]
  - HYPOTONIA [None]
  - BLOOD CREATININE INCREASED [None]
  - COMA SCALE ABNORMAL [None]
  - DIPLEGIA [None]
  - EXTENSOR PLANTAR RESPONSE [None]
  - SPEECH DISORDER [None]
  - ALTERED STATE OF CONSCIOUSNESS [None]
  - DYSKINESIA [None]
  - APHASIA [None]
  - NEUROLOGICAL DECOMPENSATION [None]
  - CONFUSIONAL STATE [None]
  - DISORIENTATION [None]
